FAERS Safety Report 19505177 (Version 1)
Quarter: 2021Q3

REPORT INFORMATION
  Report Type: Spontaneous
  Country: AU (occurrence: AU)
  Receive Date: 20210707
  Receipt Date: 20210707
  Transmission Date: 20211014
  Serious: Yes (Hospitalization, Other)
  Sender: FDA-Public Use
  Company Number: AU-ASTRAZENECA-2021A586270

PATIENT
  Sex: Male

DRUGS (4)
  1. OXYGEN. [Concomitant]
     Active Substance: OXYGEN
  2. FLIP FERUZA MIDE [Concomitant]
     Dosage: ONE IN THE MORNING AND ONE AT THE EVENING
  3. SEGER [Concomitant]
  4. FORXIGA [Suspect]
     Active Substance: DAPAGLIFLOZIN
     Route: 048

REACTIONS (2)
  - Cardiac failure [Unknown]
  - Fall [Unknown]
